FAERS Safety Report 8170888-X (Version None)
Quarter: 2012Q1

REPORT INFORMATION
  Report Type: 
  Country: None (occurrence: None)
  Receive Date: 20120104
  Receipt Date: 20111114
  Transmission Date: 20120608
  Serious: No
  Sender: FDA-Public Use
  Company Number: 2011HGS-002799

PATIENT
  Age: 40 Year
  Sex: Female
  Weight: 81.6475 kg

DRUGS (14)
  1. LISINOPRIL [Concomitant]
  2. PROTONIX [Concomitant]
  3. ALBUTEROL [Concomitant]
  4. KLONOPIN [Concomitant]
  5. CYMBALTA (ANTIDEPRESSANTS) (DULOXETINE HYDROCHLORIDE) [Concomitant]
  6. PREDNISONE TAB [Concomitant]
  7. PLAQUENIL [Concomitant]
  8. CELLCEPT [Concomitant]
  9. LYRICA [Concomitant]
  10. ADVAIR HFA [Concomitant]
  11. HYDROCODONE BITARTRATE [Concomitant]
  12. BENLYSTA [Suspect]
     Indication: SYSTEMIC LUPUS ERYTHEMATOSUS
     Dosage: 1 IN 28 D, INTRAVENOUS DRIP
     Route: 041
     Dates: start: 20111103
  13. SINGULAIR [Concomitant]
  14. ULTRAM (TAMADOL HYDROCHLORIDE) [Concomitant]

REACTIONS (3)
  - HEADACHE [None]
  - DIZZINESS [None]
  - FLUSHING [None]
